FAERS Safety Report 14553633 (Version 2)
Quarter: 2018Q1

REPORT INFORMATION
  Report Type: Spontaneous
  Country: DK (occurrence: DK)
  Receive Date: 20180220
  Receipt Date: 20180223
  Transmission Date: 20180509
  Serious: No
  Sender: FDA-Public Use
  Company Number: DK-PFIZER INC-2018065431

PATIENT
  Age: 54 Year
  Sex: Male

DRUGS (2)
  1. METHOTREXATE SODIUM. [Suspect]
     Active Substance: METHOTREXATE SODIUM
     Indication: PSORIASIS
     Dosage: UNK
  2. COAL TAR. [Suspect]
     Active Substance: COAL TAR
     Indication: PSORIASIS
     Dosage: UNK

REACTIONS (1)
  - Drug effect incomplete [Unknown]
